FAERS Safety Report 19257442 (Version 4)
Quarter: 2021Q2

REPORT INFORMATION
  Report Type: Spontaneous
  Country: US (occurrence: US)
  Receive Date: 20210513
  Receipt Date: 20210623
  Transmission Date: 20210717
  Serious: Yes (Other)
  Sender: FDA-Public Use
  Company Number: US-SA-2021SA156553

PATIENT
  Sex: Male

DRUGS (3)
  1. DUPIXENT [Suspect]
     Active Substance: DUPILUMAB
     Indication: PEMPHIGOID
  2. DUPIXENT [Suspect]
     Active Substance: DUPILUMAB
     Indication: DERMATITIS ATOPIC
     Dosage: 300 MG, QOW
     Route: 058
     Dates: start: 20210226
  3. EYLEA [Concomitant]
     Active Substance: AFLIBERCEPT

REACTIONS (8)
  - Cardiac failure congestive [Not Recovered/Not Resolved]
  - Urethral stenosis [Not Recovered/Not Resolved]
  - Skin exfoliation [Unknown]
  - Product dose omission issue [Unknown]
  - Skin irritation [Unknown]
  - Inflammation [Unknown]
  - Product use in unapproved indication [Unknown]
  - Scrotal dermatitis [Unknown]

NARRATIVE: CASE EVENT DATE: 2021
